FAERS Safety Report 17446518 (Version 10)
Quarter: 2025Q1

REPORT INFORMATION
  Report Type: Report from Study
  Country: US (occurrence: US)
  Receive Date: 20200221
  Receipt Date: 20250321
  Transmission Date: 20250408
  Serious: Yes (Hospitalization, Other)
  Sender: TAKEDA
  Company Number: US-SHIRE-US202006290

PATIENT
  Sex: Female
  Weight: 104 kg

DRUGS (36)
  1. HUMAN IMMUNOGLOBULIN G [Suspect]
     Active Substance: HUMAN IMMUNOGLOBULIN G
     Indication: Chronic inflammatory demyelinating polyradiculoneuropathy
     Dosage: 1000 MILLIGRAM/KILOGRAM, Q2WEEKS
     Dates: start: 20170110
  2. HUMAN IMMUNOGLOBULIN G [Suspect]
     Active Substance: HUMAN IMMUNOGLOBULIN G
     Dosage: 1000 MILLIGRAM/KILOGRAM, Q2WEEKS
     Dates: start: 20170113
  3. HUMAN IMMUNOGLOBULIN G [Suspect]
     Active Substance: HUMAN IMMUNOGLOBULIN G
     Dosage: 1000 MILLIGRAM/KILOGRAM, Q2WEEKS
     Dates: start: 20170214
  4. HUMAN IMMUNOGLOBULIN G [Suspect]
     Active Substance: HUMAN IMMUNOGLOBULIN G
     Dosage: 100 GRAM, Q2WEEKS
  5. HUMAN IMMUNOGLOBULIN G [Suspect]
     Active Substance: HUMAN IMMUNOGLOBULIN G
     Dosage: 1000 MILLIGRAM/KILOGRAM, Q2WEEKS
  6. PREDNISONE [Concomitant]
     Active Substance: PREDNISONE
     Indication: Product used for unknown indication
  7. ACETAMINOPHEN [Concomitant]
     Active Substance: ACETAMINOPHEN
     Indication: Product used for unknown indication
  8. DIPHENHYDRAMINE [Concomitant]
     Active Substance: DIPHENHYDRAMINE
     Indication: Product used for unknown indication
  9. SODIUM CHLORIDE [Concomitant]
     Active Substance: SODIUM CHLORIDE
     Indication: Product used for unknown indication
  10. EPINEPHRINE [Concomitant]
     Active Substance: EPINEPHRINE
     Indication: Product used for unknown indication
  11. METOPROLOL TARTRATE [Concomitant]
     Active Substance: METOPROLOL TARTRATE
     Indication: Product used for unknown indication
  12. TYLENOL WITH CODEINE [Concomitant]
     Active Substance: ACETAMINOPHEN\CODEINE PHOSPHATE
     Indication: Product used for unknown indication
  13. GLIPIZIDE\METFORMIN HYDROCHLORIDE [Concomitant]
     Active Substance: GLIPIZIDE\METFORMIN HYDROCHLORIDE
     Indication: Product used for unknown indication
  14. ALOGLIPTIN [Concomitant]
     Active Substance: ALOGLIPTIN
     Indication: Product used for unknown indication
  15. GABAPENTIN [Concomitant]
     Active Substance: GABAPENTIN
     Indication: Product used for unknown indication
  16. REMERON [Concomitant]
     Active Substance: MIRTAZAPINE
     Indication: Product used for unknown indication
  17. ZANAFLEX [Concomitant]
     Active Substance: TIZANIDINE HYDROCHLORIDE
     Indication: Product used for unknown indication
  18. ATIVAN [Concomitant]
     Active Substance: LORAZEPAM
     Indication: Product used for unknown indication
  19. IMURAN [Concomitant]
     Active Substance: AZATHIOPRINE
     Indication: Product used for unknown indication
  20. VITAMIN B12 [Concomitant]
     Active Substance: CYANOCOBALAMIN
     Indication: Product used for unknown indication
  21. VITAMIN D3 [Concomitant]
     Active Substance: CHOLECALCIFEROL
     Indication: Product used for unknown indication
  22. CARBAMAZEPINE [Concomitant]
     Active Substance: CARBAMAZEPINE
     Indication: Product used for unknown indication
  23. LEVOTHYROXINE [Concomitant]
     Active Substance: LEVOTHYROXINE
     Indication: Product used for unknown indication
  24. CHLORPROMAZINE [Concomitant]
     Active Substance: CHLORPROMAZINE
     Indication: Product used for unknown indication
  25. LEVOTHYROXINE SODIUM [Concomitant]
     Active Substance: LEVOTHYROXINE SODIUM
  26. ACETAMINOPHEN AND CODEINE [Concomitant]
     Active Substance: ACETAMINOPHEN\CODEINE PHOSPHATE
  27. RITUXAN [Concomitant]
     Active Substance: RITUXIMAB
  28. ALBUTEROL SULFATE [Concomitant]
     Active Substance: ALBUTEROL SULFATE
  29. LOSARTAN POTASSIUM [Concomitant]
     Active Substance: LOSARTAN POTASSIUM
  30. CRESTOR [Concomitant]
     Active Substance: ROSUVASTATIN CALCIUM
  31. DIPHENHYDRAMINE HYDROCHLORIDE [Concomitant]
     Active Substance: DIPHENHYDRAMINE HYDROCHLORIDE
  32. KLONOPIN [Concomitant]
     Active Substance: CLONAZEPAM
  33. WELLBUTRIN SR [Concomitant]
     Active Substance: BUPROPION HYDROCHLORIDE
  34. HUMALOG JUNIOR KWIKPEN [Concomitant]
     Active Substance: INSULIN LISPRO
  35. MOUNJARO [Concomitant]
     Active Substance: TIRZEPATIDE
  36. HEPARIN [Concomitant]
     Active Substance: HEPARIN SODIUM

REACTIONS (7)
  - Hyponatraemia [Unknown]
  - Pneumonia [Unknown]
  - Laryngeal cancer stage IV [Unknown]
  - Neoplasm malignant [Unknown]
  - Product dose omission issue [Unknown]
  - Weight decreased [Unknown]
  - Pain [Unknown]
